FAERS Safety Report 7525909-1 (Version None)
Quarter: 2011Q2

REPORT INFORMATION
  Report Type: 
  Country: None (occurrence: None)
  Receive Date: 20110606
  Receipt Date: 20110527
  Transmission Date: 20111010
  Serious: Yes (Life-Threatening, Hospitalization)
  Sender: FDA-Public Use
  Company Number: B0722378A

PATIENT
  Age: 47 Year
  Sex: Female
  Weight: 80 kg

DRUGS (2)
  1. BLUE DYE [Suspect]
     Route: 058
     Dates: start: 20110328, end: 20110328
  2. CEFUROXIME [Suspect]
     Route: 042
     Dates: start: 20110328, end: 20110328

REACTIONS (1)
  - ANAPHYLACTIC REACTION [None]
